FAERS Safety Report 6282163-9 (Version None)
Quarter: 2009Q3

REPORT INFORMATION
  Report Type: 
  Country: None (occurrence: None)
  Receive Date: 20090721
  Receipt Date: 20090721
  Transmission Date: 20100115
  Serious: Yes (Life-Threatening, Hospitalization, Disabling, Other)
  Sender: FDA-Public Use
  Company Number: None

PATIENT
  Sex: Female
  Weight: 68 kg

DRUGS (4)
  1. PROPYL-THIOURACIL [Suspect]
     Indication: BASEDOW'S DISEASE
     Dosage: 50MG TID PO
     Route: 048
     Dates: start: 20090320, end: 20090701
  2. PROPYLTHIOURACIL [Concomitant]
  3. BETASERON [Concomitant]
  4. PROPRANOLOL [Concomitant]

REACTIONS (10)
  - ACUTE HEPATIC FAILURE [None]
  - ASTHENIA [None]
  - BLOOD ALBUMIN DECREASED [None]
  - DIARRHOEA [None]
  - DISORIENTATION [None]
  - DRUG TOXICITY [None]
  - LETHARGY [None]
  - LIVER TRANSPLANT [None]
  - MENTAL STATUS CHANGES [None]
  - SOMNOLENCE [None]
